FAERS Safety Report 6497189-X (Version None)
Quarter: 2009Q4

REPORT INFORMATION
  Report Type: 
  Country: None (occurrence: None)
  Receive Date: 20091215
  Receipt Date: 20090708
  Transmission Date: 20100525
  Serious: No
  Sender: FDA-Public Use
  Company Number: A0787402A

PATIENT
  Age: 84 Year
  Sex: Male

DRUGS (5)
  1. AVODART [Suspect]
     Indication: BENIGN PROSTATIC HYPERPLASIA
     Dosage: .5MG PER DAY
     Route: 048
     Dates: start: 20040501
  2. FOSINOPRIL SODIUM [Concomitant]
  3. CARDURA [Concomitant]
  4. COSOPT [Concomitant]
  5. LUMIGAN [Concomitant]

REACTIONS (5)
  - DRUG INEFFECTIVE [None]
  - FATIGUE [None]
  - GAIT DISTURBANCE [None]
  - POLLAKIURIA [None]
  - PRODUCT QUALITY ISSUE [None]
